FAERS Safety Report 8224565-7 (Version None)
Quarter: 2012Q1

REPORT INFORMATION
  Report Type: 
  Country: None (occurrence: None)
  Receive Date: 20120321
  Receipt Date: 20120308
  Transmission Date: 20120608
  Serious: Yes (Hospitalization)
  Sender: FDA-Public Use
  Company Number: US-BAYER-2012-006656

PATIENT
  Age: 50 Year
  Sex: Female
  Weight: 98 kg

DRUGS (4)
  1. YASMIN [Suspect]
     Indication: MENORRHAGIA
     Dosage: UNK UNK, QD
     Dates: start: 20011211, end: 20041201
  2. AZITHROMYCIN [Concomitant]
     Route: 048
  3. ULTRACET [Concomitant]
     Route: 048
  4. YASMIN [Suspect]
     Indication: UTERINE LEIOMYOMA

REACTIONS (1)
  - PULMONARY EMBOLISM [None]
